FAERS Safety Report 8904270 (Version 1)
Quarter: 2012Q4

REPORT INFORMATION
  Report Type: 
  Country: US (occurrence: US)
  Receive Date: 20121112
  Receipt Date: 20121112
  Transmission Date: 20130627
  Serious: Yes (Hospitalization)
  Sender: FDA-Public Use
  Company Number: US-GLAXOSMITHKLINE-A0999960A

PATIENT
  Age: 57 Year
  Sex: Male

DRUGS (4)
  1. ADVAIR [Suspect]
     Indication: CHRONIC OBSTRUCTIVE PULMONARY DISEASE
     Dosage: 1PUFF Twice per day
     Route: 055
  2. SPIRIVA [Concomitant]
  3. PREDNISONE [Concomitant]
  4. ANTIBIOTICS [Concomitant]

REACTIONS (4)
  - Rib fracture [Recovering/Resolving]
  - Traumatic lung injury [Recovering/Resolving]
  - Chronic obstructive pulmonary disease [Recovering/Resolving]
  - Fall [Unknown]
